FAERS Safety Report 18168062 (Version 1)
Quarter: 2020Q3

REPORT INFORMATION
  Report Type: Report from Study
  Country: GB (occurrence: GB)
  Receive Date: 20200819
  Receipt Date: 20200819
  Transmission Date: 20201103
  Serious: Yes (Other)
  Sender: FDA-Public Use
  Company Number: GB-TEVA-2020-GB-1814880

PATIENT
  Sex: Female

DRUGS (3)
  1. IRON TABLETS [Concomitant]
  2. VITAMIN D [Concomitant]
     Active Substance: VITAMIN D NOS
  3. COPAXONE [Suspect]
     Active Substance: GLATIRAMER ACETATE
     Indication: MULTIPLE SCLEROSIS
     Route: 058
     Dates: start: 202001

REACTIONS (6)
  - Gait disturbance [Unknown]
  - Maternal exposure during breast feeding [Unknown]
  - Muscular weakness [Unknown]
  - Product use complaint [Unknown]
  - Condition aggravated [Unknown]
  - Incorrect dose administered [Unknown]
